FAERS Safety Report 5124106-7 (Version None)
Quarter: 2006Q4

REPORT INFORMATION
  Report Type: 
  Country: None (occurrence: None)
  Receive Date: 20061010
  Receipt Date: 20060112
  Transmission Date: 20070319
  Serious: No
  Sender: FDA-Public Use
  Company Number: US-BRISTOL-MYERS SQUIBB COMPANY-13245782

PATIENT
  Age: 53 Year
  Sex: Female
  Weight: 113 kg

DRUGS (5)
  1. AVAPRO [Suspect]
     Indication: HYPERTENSION
     Dates: start: 20050901, end: 20060111
  2. GLUCOPHAGE [Concomitant]
  3. BETAXOLOL [Concomitant]
  4. ZOLOFT [Concomitant]
  5. LIPITOR [Concomitant]

REACTIONS (3)
  - FEELING ABNORMAL [None]
  - FLUID RETENTION [None]
  - MEDICATION ERROR [None]
